FAERS Safety Report 8563304 (Version 6)
Quarter: 2013Q1

REPORT INFORMATION
  Report Type: Spontaneous
  Country: US (occurrence: US)
  Receive Date: 20120515
  Receipt Date: 20130311
  Transmission Date: 20140127
  Serious: Yes (Death, Hospitalization, Other)
  Sender: FDA-Public Use
  Company Number: US-B.I. PHARMACEUTICALS,INC./RIDGEFIELD-2012-BP-10685BP

PATIENT
  Age: 74 Year
  Sex: Female
  Weight: 49.9 kg

DRUGS (21)
  1. PRADAXA [Suspect]
     Indication: ATRIAL FIBRILLATION
     Dosage: 300 MG
     Route: 048
     Dates: start: 20110810, end: 20110912
  2. PREDNISONE [Suspect]
     Indication: RHEUMATOID ARTHRITIS
     Dosage: 10 MG
     Route: 048
  3. METHOTREXATE [Suspect]
     Indication: RHEUMATOID ARTHRITIS
     Dates: end: 20110909
  4. ADVIL [Concomitant]
     Indication: ARTHRALGIA
  5. FENTANYL [Concomitant]
     Route: 062
  6. FOSAMAX [Concomitant]
  7. DIOVAN [Concomitant]
  8. DILTIAZEM [Concomitant]
     Dosage: 480 MG
     Route: 048
  9. LANOXIN [Concomitant]
     Dosage: 0.125 MG
     Route: 048
  10. CITRACAL 10 PLUS VIT D [Concomitant]
     Route: 048
  11. GLYCOLAX [Concomitant]
     Route: 048
  12. PROCTOFOAM HC WITH PRAMOXINE [Concomitant]
     Route: 054
  13. PROTONIX [Concomitant]
     Dosage: 40 MG
     Route: 048
  14. VITAMIN D3 [Concomitant]
     Dosage: 2000 U
     Route: 048
  15. BETA-CAROTENE [Concomitant]
     Dosage: 250000 U
     Route: 048
  16. FOLIC ACID [Concomitant]
     Dosage: 1 MG
     Route: 048
  17. LASIX [Concomitant]
     Dosage: 20 MG
     Route: 048
  18. TYLENOL WITH HYDROCODONE [Concomitant]
     Route: 048
  19. LOSARTAN [Concomitant]
     Dosage: 100 MG
     Route: 048
  20. MILK THISTLE [Concomitant]
     Dosage: 400 MG
     Route: 048
  21. PIROXICAM [Concomitant]

REACTIONS (15)
  - Septic shock [Fatal]
  - Gastrointestinal haemorrhage [Fatal]
  - Respiratory failure [Fatal]
  - Abdominal sepsis [Fatal]
  - Multi-organ failure [Unknown]
  - Haemorrhagic anaemia [Unknown]
  - Hypovolaemic shock [Unknown]
  - Duodenal ulcer perforation [Unknown]
  - Small intestinal obstruction [Unknown]
  - Cardiac failure congestive [Unknown]
  - Venous thrombosis limb [Unknown]
  - Coagulopathy [Unknown]
  - Pneumonia [Unknown]
  - Haematochezia [Unknown]
  - Contusion [Unknown]
